FAERS Safety Report 15772123 (Version 3)
Quarter: 2019Q3

REPORT INFORMATION
  Report Type: Spontaneous
  Country: US (occurrence: US)
  Receive Date: 20181228
  Receipt Date: 20190827
  Transmission Date: 20191004
  Serious: No
  Sender: FDA-Public Use
  Company Number: US-SA-2018SA394477

PATIENT
  Age: 12 Year
  Sex: Male
  Weight: 37.64 kg

DRUGS (22)
  1. BACTRIM DS [Concomitant]
     Active Substance: SULFAMETHOXAZOLE\TRIMETHOPRIM
     Dosage: 1 DF, PRN
     Route: 048
     Dates: start: 20120821
  2. NORMAL SALINE [Concomitant]
     Active Substance: SODIUM CHLORIDE
     Indication: FLUSHING
     Dosage: 0.9 %, PRN
     Route: 042
     Dates: start: 20171101
  3. SODIUM CHLORIDE. [Concomitant]
     Active Substance: SODIUM CHLORIDE
     Indication: FLUSHING
     Dosage: 0.9 %, PRN
     Route: 042
     Dates: start: 20171101
  4. SODIUM CHLORIDE. [Concomitant]
     Active Substance: SODIUM CHLORIDE
     Dosage: 0.9 %, PRN
     Route: 042
     Dates: start: 20180818
  5. HEPARIN [Concomitant]
     Active Substance: HEPARIN SODIUM
     Indication: FLUSHING
     Dosage: 100 UNITS/ML; AS DIRECTED
     Route: 042
     Dates: start: 20171101
  6. ALBUTEROL [SALBUTAMOL] [Concomitant]
     Active Substance: ALBUTEROL
     Dosage: 1 DF, PRN
     Dates: start: 20160609
  7. AMOXICILLIN. [Concomitant]
     Active Substance: AMOXICILLIN
     Dosage: 1 DF, PRN
     Route: 048
     Dates: start: 20131211
  8. DIPHENHYDRAMINE. [Concomitant]
     Active Substance: DIPHENHYDRAMINE
     Indication: ANAPHYLACTIC REACTION
     Dosage: 25 MG, PRN
     Route: 042
     Dates: start: 20171101
  9. ADDERALL [Concomitant]
     Active Substance: AMPHETAMINE ASPARTATE\AMPHETAMINE SULFATE\DEXTROAMPHETAMINE SACCHARATE\DEXTROAMPHETAMINE SULFATE
     Dosage: 5 MG, QD
     Route: 048
     Dates: start: 20170104
  10. RIFAMPIN. [Concomitant]
     Active Substance: RIFAMPIN
     Dosage: 150 MG, PRN
     Route: 048
     Dates: start: 20120821
  11. ALDURAZYME [Suspect]
     Active Substance: LARONIDASE
     Indication: MUCOPOLYSACCHARIDOSIS I
     Dosage: 0.54 MG/KG, QW
     Route: 041
     Dates: start: 20120501
  12. HEPARIN [Concomitant]
     Active Substance: HEPARIN SODIUM
     Dosage: 100 ML, UNK
     Route: 042
     Dates: start: 20180818
  13. EPINEPHRINE. [Concomitant]
     Active Substance: EPINEPHRINE
     Dosage: 0.3 MG, PRN
     Route: 030
     Dates: start: 20180818
  14. PRILOCAINE [Concomitant]
     Active Substance: PRILOCAINE
     Dosage: UNK UNK, FREQUENCY UD
     Route: 061
     Dates: start: 20180818
  15. LIDOCAINE. [Concomitant]
     Active Substance: LIDOCAINE
     Dosage: 2.5 %, FREQUENCY: UD
     Route: 061
     Dates: start: 20180818
  16. METHYLPREDNISOLONE. [Concomitant]
     Active Substance: METHYLPREDNISOLONE
     Dosage: 40 MG, PRN
     Route: 042
     Dates: start: 20180818
  17. DIPHENHYDRAMINE. [Concomitant]
     Active Substance: DIPHENHYDRAMINE
     Dosage: 25 MG, PRN
     Route: 042
     Dates: start: 20180818
  18. LIDOCAINE. [Concomitant]
     Active Substance: LIDOCAINE
     Indication: PREMEDICATION
     Dosage: 2.5 %, UNK
     Route: 061
     Dates: start: 20171101
  19. METHYLPREDNISOLONE. [Concomitant]
     Active Substance: METHYLPREDNISOLONE
     Dosage: 40 MG, PRN
     Route: 042
     Dates: start: 20171101
  20. NORMAL SALINE [Concomitant]
     Active Substance: SODIUM CHLORIDE
     Dosage: 0.9 %, PRN
     Route: 042
     Dates: start: 20180818
  21. EPINEPHRINE. [Concomitant]
     Active Substance: EPINEPHRINE
     Indication: ANAPHYLACTIC REACTION
     Dosage: 12.5 MG, PRN
     Route: 042
     Dates: start: 20171101
  22. AMOXICILLIN. [Concomitant]
     Active Substance: AMOXICILLIN
     Dosage: 500 MG, QD
     Route: 048
     Dates: start: 20140127

REACTIONS (4)
  - Nasopharyngitis [Not Recovered/Not Resolved]
  - Device issue [Unknown]
  - Pyrexia [Unknown]
  - Cough [Unknown]

NARRATIVE: CASE EVENT DATE: 2019
